FAERS Safety Report 7454952-6 (Version None)
Quarter: 2011Q2

REPORT INFORMATION
  Report Type: 
  Country: None (occurrence: None)
  Receive Date: 20110503
  Receipt Date: 20110428
  Transmission Date: 20111010
  Serious: Yes (Hospitalization)
  Sender: FDA-Public Use
  Company Number: US-BRISTOL-MYERS SQUIBB COMPANY-15708332

PATIENT
  Age: 58 Year
  Sex: Male

DRUGS (9)
  1. ATARAX [Concomitant]
     Dosage: FOUR TIMES DAILY AS NEEDED
  2. AMBIEN CR [Concomitant]
     Dosage: AT BED TIME AS NEEDED
  3. LORAZEPAM [Concomitant]
     Dosage: THREE TIMES DAILY AS NEEDED
  4. PROBIOTICA [Concomitant]
  5. TOPROL-XL [Concomitant]
  6. IBUPROFEN [Concomitant]
     Dosage: 1DF=2 TABLETS IBUPROFEN 200MG
  7. IPILIMUMAB [Suspect]
     Indication: MALIGNANT MELANOMA
     Dosage: NO. OF COURSES-4
     Route: 042
     Dates: start: 20110202, end: 20110406
  8. VALIUM [Concomitant]
     Dosage: BED TIME
  9. SENOKOT [Concomitant]

REACTIONS (3)
  - DEHYDRATION [None]
  - NAUSEA [None]
  - COLITIS [None]
